FAERS Safety Report 15823260 (Version 2)
Quarter: 2019Q4

REPORT INFORMATION
  Report Type: Report from Study
  Country: US (occurrence: US)
  Receive Date: 20190114
  Receipt Date: 20191213
  Transmission Date: 20200122
  Serious: No
  Sender: FDA-Public Use
  Company Number: PHEH2019US001484

PATIENT
  Sex: Female

DRUGS (6)
  1. BIOTIN [Concomitant]
     Active Substance: BIOTIN
  2. ENTRESTO [Suspect]
     Active Substance: SACUBITRIL\VALSARTAN
     Dosage: 100 MG, QD
     Route: 048
  3. VITAMIN C [Concomitant]
     Active Substance: ASCORBIC ACID
  4. BUMEX [Concomitant]
     Active Substance: BUMETANIDE
     Route: 065
  5. BISOPROLOL FUMARATE. [Concomitant]
     Active Substance: BISOPROLOL FUMARATE
  6. B1 [Concomitant]
     Route: 065

REACTIONS (5)
  - Inappropriate schedule of product administration [Unknown]
  - Dizziness [Unknown]
  - Cough [Unknown]
  - Abdominal distension [Unknown]
  - Peripheral swelling [Unknown]
